FAERS Safety Report 9282439 (Version 3)
Quarter: 2013Q3

REPORT INFORMATION
  Report Type: Spontaneous
  Country: US (occurrence: US)
  Receive Date: 20130510
  Receipt Date: 20130710
  Transmission Date: 20140515
  Serious: Yes (Other)
  Sender: FDA-Public Use
  Company Number: US-AMGEN-USASP2013008550

PATIENT
  Age: 93 Year
  Sex: Male
  Weight: 57.6 kg

DRUGS (3)
  1. XGEVA [Suspect]
     Indication: PROSTATE CANCER
     Dosage: 120 MG, QMO
     Route: 058
     Dates: start: 20101207
  2. FLOMAX                             /00889901/ [Concomitant]
  3. FINASTERIDE [Concomitant]

REACTIONS (3)
  - Urinary retention [Unknown]
  - Device failure [Unknown]
  - Dental caries [Unknown]
